FAERS Safety Report 6885883-8 (Version None)
Quarter: 2010Q3

REPORT INFORMATION
  Report Type: 
  Country: None (occurrence: None)
  Receive Date: 20100729
  Receipt Date: 20080318
  Transmission Date: 20110219
  Serious: No
  Sender: FDA-Public Use
  Company Number: US-PFIZER INC-2008025253

PATIENT
  Sex: Male
  Weight: 81.818 kg

DRUGS (2)
  1. CELEBREX [Suspect]
     Indication: ARTHRITIS
     Dates: start: 20080201
  2. SIMVASTATIN [Concomitant]

REACTIONS (1)
  - INSOMNIA [None]
